FAERS Safety Report 5572343-X (Version None)
Quarter: 2007Q4

REPORT INFORMATION
  Report Type: 
  Country: None (occurrence: None)
  Receive Date: 20071219
  Receipt Date: 20071129
  Transmission Date: 20080405
  Serious: Yes (Death)
  Sender: FDA-Public Use
  Company Number: 2007US003004

PATIENT
  Age: 28 Week
  Sex: Male
  Weight: 1.3 kg

DRUGS (1)
  1. AMBISOME [Suspect]
     Indication: SYSTEMIC CANDIDA
     Dosage: 78 MG/KG

REACTIONS (2)
  - DRUG INEFFECTIVE [None]
  - SYSTEMIC CANDIDA [None]
